FAERS Safety Report 13778242 (Version 2)
Quarter: 2017Q3

REPORT INFORMATION
  Report Type: Spontaneous
  Country: US (occurrence: US)
  Receive Date: 20170721
  Receipt Date: 20170911
  Transmission Date: 20171127
  Serious: Yes (Other)
  Sender: FDA-Public Use
  Company Number: US-SUNOVION-2017SUN003161

PATIENT
  Age: 42 Year
  Sex: Male
  Weight: 97.51 kg

DRUGS (3)
  1. LATUDA [Suspect]
     Active Substance: LURASIDONE HYDROCHLORIDE
     Indication: AFFECTIVE DISORDER
     Dosage: 20 MG Q DAY
     Route: 048
     Dates: start: 20170707, end: 20170708
  2. GABAPENTIN [Concomitant]
     Indication: AFFECTIVE DISORDER
     Dosage: 300 MG, QD
  3. LAMICTAL [Concomitant]
     Indication: AFFECTIVE DISORDER
     Dosage: 200 MG, QD
     Route: 048

REACTIONS (7)
  - Drooling [Recovered/Resolved]
  - Feeling abnormal [Recovered/Resolved]
  - Blood pressure increased [Recovered/Resolved]
  - Vasodilatation [Recovered/Resolved]
  - Restlessness [Recovered/Resolved]
  - Musculoskeletal stiffness [Recovered/Resolved]
  - Off label use [Unknown]

NARRATIVE: CASE EVENT DATE: 20170707
